FAERS Safety Report 16538344 (Version 2)
Quarter: 2019Q3

REPORT INFORMATION
  Report Type: Spontaneous
  Country: ES (occurrence: ES)
  Receive Date: 20190708
  Receipt Date: 20190711
  Transmission Date: 20191004
  Serious: Yes (Death, Life-Threatening, Hospitalization, Other)
  Sender: FDA-Public Use
  Company Number: ES-009507513-1905ESP008665

PATIENT
  Age: 71 Year
  Sex: Female
  Weight: 45 kg

DRUGS (2)
  1. KEYTRUDA [Suspect]
     Active Substance: PEMBROLIZUMAB
     Indication: NON-SMALL CELL LUNG CANCER
     Dosage: 84 MILLIGRAM (ALSO REPORTED AS 48 MG), EVERY 3 WEEKS
     Route: 042
     Dates: start: 20180615, end: 20190201
  2. KEYTRUDA [Suspect]
     Active Substance: PEMBROLIZUMAB
     Dosage: 84 MILLIGRAM(ALSO REPORTED AS 48 MG), EVERY 3 WEEKS
     Route: 042
     Dates: start: 20190405

REACTIONS (9)
  - Enterocolitis [Fatal]
  - General physical health deterioration [Unknown]
  - Chest pain [Unknown]
  - Pericardial effusion [Unknown]
  - Malignant neoplasm progression [Unknown]
  - Underdose [Unknown]
  - Loss of consciousness [Unknown]
  - Anaemia [Unknown]
  - Pleural effusion [Unknown]

NARRATIVE: CASE EVENT DATE: 20180615
